FAERS Safety Report 8575341-7 (Version None)
Quarter: 2012Q3

REPORT INFORMATION
  Report Type: 
  Country: None (occurrence: None)
  Receive Date: 20120807
  Receipt Date: 20120731
  Transmission Date: 20120928
  Serious: No
  Sender: FDA-Public Use
  Company Number: US-PFIZER INC-2012186541

PATIENT
  Sex: Female

DRUGS (1)
  1. LYRICA [Suspect]

REACTIONS (5)
  - DIZZINESS [None]
  - HEADACHE [None]
  - WEIGHT INCREASED [None]
  - SOMNOLENCE [None]
  - FEELING ABNORMAL [None]
